FAERS Safety Report 13276108 (Version 16)
Quarter: 2022Q4

REPORT INFORMATION
  Report Type: Report from Study
  Country: JP (occurrence: JP)
  Receive Date: 20170228
  Receipt Date: 20221109
  Transmission Date: 20230113
  Serious: Yes (Hospitalization, Other)
  Sender: FDA-Public Use
  Company Number: JP-VIIVHC-JP2015JPN102192AA

PATIENT

DRUGS (14)
  1. DOLUTEGRAVIR [Suspect]
     Active Substance: DOLUTEGRAVIR
     Indication: HIV infection
     Dosage: 100 MG, 1D
     Route: 048
     Dates: start: 20140613
  2. NORVIR [Suspect]
     Active Substance: RITONAVIR
     Indication: HIV infection
     Dosage: 200 MG, 1D
     Route: 048
     Dates: start: 20140613
  3. ISENTRESS [Suspect]
     Active Substance: RALTEGRAVIR POTASSIUM
     Indication: HIV infection
     Dosage: 800 MG, 1D
     Route: 048
     Dates: start: 20101215, end: 20140612
  4. PREZISTA [Suspect]
     Active Substance: DARUNAVIR ETHANOLATE
     Indication: HIV infection
     Dosage: 600 MG, BID
     Route: 048
     Dates: start: 20140613
  5. INTELENCE [Suspect]
     Active Substance: ETRAVIRINE
     Indication: HIV infection
     Dosage: 400 MG, 1D
     Route: 048
     Dates: start: 20140613
  6. TRUVADA [Suspect]
     Active Substance: EMTRICITABINE\TENOFOVIR DISOPROXIL FUMARATE
     Indication: HIV infection
     Dosage: 1 DF, 1D
     Route: 048
     Dates: start: 20050616, end: 20140612
  7. CLARITHROMYCIN [Concomitant]
     Active Substance: CLARITHROMYCIN
     Indication: Opportunistic infection prophylaxis
     Dosage: 200 MG, BID
     Dates: start: 20070401, end: 20140612
  8. AZITHROMYCIN DIHYDRATE [Concomitant]
     Active Substance: AZITHROMYCIN DIHYDRATE
     Indication: Opportunistic infection prophylaxis
     Dosage: 1200 MG, WE
     Dates: start: 20140613, end: 20160617
  9. DIFLUCAN [Concomitant]
     Active Substance: FLUCONAZOLE
     Indication: Antifungal prophylaxis
     Dosage: 200 MG, QD
     Dates: start: 20140401, end: 20150612
  10. ZOPICLONE [Concomitant]
     Active Substance: ZOPICLONE
     Indication: Insomnia
     Dosage: 7.5 MG, QD
     Dates: start: 20140401, end: 20140612
  11. URSO [Concomitant]
     Active Substance: URSODIOL
     Indication: Hepatitis C
     Dosage: 200 MG, TID
     Dates: start: 20140401, end: 20160629
  12. BENEFIX [Concomitant]
     Active Substance: COAGULATION FACTOR IX RECOMBINANT HUMAN\ISOPROPYL ALCOHOL
     Indication: Haemophilia
     Dosage: 2000 IU, 1 OR 2 TIMES/A WEEK
     Route: 042
     Dates: start: 20140401, end: 20190830
  13. LORMETAZEPAM [Concomitant]
     Active Substance: LORMETAZEPAM
     Indication: Insomnia
     Dosage: 1 MG, QD
     Dates: start: 20140613
  14. REFIXIA [Concomitant]
     Dosage: UNK
     Dates: start: 20190906

REACTIONS (14)
  - Hepatitis C [Recovering/Resolving]
  - Renal impairment [Not Recovered/Not Resolved]
  - Nausea [Recovering/Resolving]
  - Hyponatraemia [Not Recovered/Not Resolved]
  - Lymphocyte count decreased [Recovering/Resolving]
  - Protein total increased [Not Recovered/Not Resolved]
  - Constipation [Recovered/Resolved]
  - Cataract [Recovering/Resolving]
  - Hypertension [Not Recovered/Not Resolved]
  - Conjunctival haemorrhage [Recovered/Resolved]
  - Periodontal disease [Not Recovered/Not Resolved]
  - Cataract [Recovered/Resolved]
  - Intraocular lens implant [Not Recovered/Not Resolved]
  - Intraocular lens implant [Not Recovered/Not Resolved]

NARRATIVE: CASE EVENT DATE: 20120713
